FAERS Safety Report 6448527-5 (Version None)
Quarter: 2009Q4

REPORT INFORMATION
  Report Type: 
  Country: None (occurrence: None)
  Receive Date: 20091119
  Receipt Date: 20091119
  Transmission Date: 20100525
  Serious: Yes (Life-Threatening)
  Sender: FDA-Public Use
  Company Number: None

PATIENT
  Age: 70 Year
  Sex: Male
  Weight: 70 kg

DRUGS (1)
  1. ACETAMINOPHEN AND HYDROCODONE BITARTRATE [Suspect]
     Indication: PAIN
     Dosage: 2 TAB ONCE PO
     Route: 048
     Dates: start: 20091027, end: 20091027

REACTIONS (5)
  - CONTUSION [None]
  - EXCORIATION [None]
  - HYPOVENTILATION [None]
  - RESPIRATORY DEPRESSION [None]
  - SINUSITIS [None]
